FAERS Safety Report 4697063-5 (Version None)
Quarter: 2005Q2

REPORT INFORMATION
  Report Type: 
  Country: None (occurrence: None)
  Receive Date: 20050127
  Receipt Date: 20050127
  Transmission Date: 20051028
  Serious: Yes (Other)
  Sender: FDA-Public Use
  Company Number: None

PATIENT
  Sex: Female
  Weight: 132.4503 kg

DRUGS (1)
  1. LASIX [Suspect]
     Indication: OEDEMA
     Dosage: QD

REACTIONS (2)
  - DRUG INEFFECTIVE [None]
  - SWELLING [None]
